FAERS Safety Report 8905484 (Version 2)
Quarter: 2013Q1

REPORT INFORMATION
  Report Type: Spontaneous
  Country: GB (occurrence: GB)
  Receive Date: 20121111
  Receipt Date: 20130115
  Transmission Date: 20140127
  Serious: Yes (Other)
  Sender: FDA-Public Use
  Company Number: PHFR2012GB005728

PATIENT
  Age: 44 Year
  Sex: Female
  Weight: 78.6 kg

DRUGS (5)
  1. CLOZARIL [Suspect]
     Indication: PSYCHOTIC DISORDER
     Dosage: 175 MG, UNK
     Route: 048
     Dates: start: 20120828
  2. CLOZARIL [Suspect]
     Dosage: UNK UKN, UNK
     Dates: start: 20120831
  3. CLOZARIL [Suspect]
     Dosage: 150 MG, UNK
  4. IMODIUM [Concomitant]
     Dosage: UNK
  5. DIORALYTE [Concomitant]
     Dosage: UNK

REACTIONS (2)
  - Diarrhoea [Recovered/Resolved]
  - Psychiatric symptom [Unknown]
